FAERS Safety Report 8494443-7 (Version None)
Quarter: 2012Q3

REPORT INFORMATION
  Report Type: 
  Country: None (occurrence: None)
  Receive Date: 20120709
  Receipt Date: 20120628
  Transmission Date: 20120928
  Serious: Yes (Other)
  Sender: FDA-Public Use
  Company Number: US-US-EMD SERONO, INC.-7135079

PATIENT
  Sex: Female
  Weight: 82 kg

DRUGS (5)
  1. LOVASTATIN [Concomitant]
     Indication: HYPERLIPIDAEMIA
     Dates: start: 20111009
  2. WELLBUTRIN SR [Concomitant]
     Indication: DEPRESSION
     Dates: end: 20090323
  3. REBIF [Suspect]
     Indication: MULTIPLE SCLEROSIS
     Dates: start: 20030701, end: 20041216
  4. REBIF [Suspect]
     Route: 058
     Dates: start: 20091003, end: 20110501
  5. LISINOPRIL [Concomitant]
     Indication: HYPERTENSION
     Dates: start: 20120508

REACTIONS (3)
  - HEADACHE [None]
  - MYOCARDIAL INFARCTION [None]
  - PAIN IN EXTREMITY [None]
